FAERS Safety Report 5745422-1 (Version None)
Quarter: 2008Q2

REPORT INFORMATION
  Report Type: 
  Country: None (occurrence: None)
  Receive Date: 20080521
  Receipt Date: 20080519
  Transmission Date: 20081010
  Serious: Yes (Other)
  Sender: FDA-Public Use
  Company Number: US-BRISTOL-MYERS SQUIBB COMPANY-14144653

PATIENT
  Age: 50 Year
  Sex: Female
  Weight: 77 kg

DRUGS (3)
  1. ABILIFY [Suspect]
     Indication: BIPOLAR DISORDER
     Dosage: STARTED IN MAR-2007 OR APR-2007
     Dates: start: 20070101, end: 20071201
  2. CYCLOBENZAPRINE HCL [Concomitant]
  3. BEN GAY [Concomitant]

REACTIONS (3)
  - AMENORRHOEA [None]
  - HYPOTHYROIDISM [None]
  - SWELLING [None]
